FAERS Safety Report 7217636-5 (Version None)
Quarter: 2011Q1

REPORT INFORMATION
  Report Type: 
  Country: None (occurrence: None)
  Receive Date: 20110110
  Receipt Date: 20101207
  Transmission Date: 20110831
  Serious: Yes (Life-Threatening, Other)
  Sender: FDA-Public Use
  Company Number: US-NAPPMUNDI-DEU-2010-0006848

PATIENT
  Age: 7 Month
  Sex: Female
  Weight: 9.4 kg

DRUGS (4)
  1. LORAZEPAM [Suspect]
     Indication: ANAESTHESIA PROCEDURE
  2. DIPHENHYDRAMINE [Suspect]
     Indication: ANAESTHESIA PROCEDURE
  3. FENTANYL [Suspect]
     Indication: ANAESTHESIA PROCEDURE
  4. HYDROMORPHONE HCL [Suspect]
     Indication: ANAESTHESIA PROCEDURE

REACTIONS (3)
  - AGITATION [None]
  - DELIRIUM [None]
  - INFANTILE APNOEIC ATTACK [None]
